FAERS Safety Report 6081493-3 (Version None)
Quarter: 2009Q1

REPORT INFORMATION
  Report Type: 
  Country: None (occurrence: None)
  Receive Date: 20090218
  Receipt Date: 20090205
  Transmission Date: 20090719
  Serious: Yes (Disabling)
  Sender: FDA-Public Use
  Company Number: DK-CELGENEUS-044-50794-09020322

PATIENT
  Age: 72 Year
  Sex: Female

DRUGS (1)
  1. VIDAZA [Suspect]
     Route: 058

REACTIONS (1)
  - NEUROPATHY PERIPHERAL [None]
